FAERS Safety Report 8185778-6 (Version None)
Quarter: 2012Q1

REPORT INFORMATION
  Report Type: 
  Country: None (occurrence: None)
  Receive Date: 20120305
  Receipt Date: 20120223
  Transmission Date: 20120608
  Serious: Yes (Hospitalization, Other)
  Sender: FDA-Public Use
  Company Number: JP-AMGEN-JPNSP2012013734

PATIENT
  Sex: Female

DRUGS (2)
  1. CINACALCET HYDROCHLORIDE [Suspect]
     Indication: HYPERPARATHYROIDISM SECONDARY
     Dosage: 25 MG, UNK
     Route: 048
     Dates: start: 20120123, end: 20120208
  2. MIRCERA [Suspect]
     Dosage: UNK UNK, UNK
     Dates: start: 20120106

REACTIONS (2)
  - ERYTHEMA MULTIFORME [None]
  - APHAGIA [None]
